FAERS Safety Report 9844352 (Version 1)
Quarter: 2014Q1

REPORT INFORMATION
  Report Type: Spontaneous
  Country: BE (occurrence: None)
  Receive Date: 20140123
  Receipt Date: 20140123
  Transmission Date: 20141002
  Serious: Yes (Life-Threatening)
  Sender: FDA-Public Use
  Company Number: 2014BE00018

PATIENT
  Sex: 0

DRUGS (4)
  1. IRINOTECAN [Suspect]
     Indication: COLORECTAL CANCER METASTATIC
     Dosage: IV OVER 90 MINUTES
     Route: 042
  2. FLUOROURACIL [Suspect]
     Dosage: BLOUS AND 2400 MG/M2 CONTINUOUS INFUSION OVER 46 HOURS
     Route: 042
  3. LEUCOVORIN [Suspect]
     Indication: COLORECTAL CANCER METASTATIC
     Dosage: OVER 2 HOURS
  4. AFLIBERCEPT [Suspect]
     Indication: COLORECTAL CANCER METASTATIC
     Dosage: OVER 1 HOUR ON DAY 1 EVERY 2 WEEKS
     Route: 042

REACTIONS (1)
  - Hypertension [None]
